FAERS Safety Report 23803282 (Version 1)
Quarter: 2024Q2

REPORT INFORMATION
  Report Type: Spontaneous
  Country: FR (occurrence: FR)
  Receive Date: 20240501
  Receipt Date: 20240501
  Transmission Date: 20240716
  Serious: Yes (Other)
  Sender: FDA-Public Use
  Company Number: FR-ROCHE-3553879

PATIENT
  Age: 57 Year
  Sex: Female
  Weight: 65 kg

DRUGS (6)
  1. CAPECITABINE [Suspect]
     Active Substance: CAPECITABINE
     Indication: Breast cancer
     Dosage: 1500MG 2/J
     Route: 048
     Dates: start: 20231222, end: 20240104
  2. CAPECITABINE [Suspect]
     Active Substance: CAPECITABINE
     Dosage: 1500MG 2/J
     Route: 048
     Dates: start: 20240202
  3. TRASTUZUMAB [Suspect]
     Active Substance: TRASTUZUMAB
     Indication: Breast cancer
     Route: 041
     Dates: start: 20231222, end: 20240219
  4. TRASTUZUMAB [Suspect]
     Active Substance: TRASTUZUMAB
     Route: 041
     Dates: start: 20240129
  5. TUCATINIB [Suspect]
     Active Substance: TUCATINIB
     Indication: Breast cancer
     Route: 065
     Dates: start: 20231222, end: 20240112
  6. TUCATINIB [Suspect]
     Active Substance: TUCATINIB
     Route: 065
     Dates: start: 20240202

REACTIONS (2)
  - Hepatic cytolysis [Not Recovered/Not Resolved]
  - Cholestasis [Not Recovered/Not Resolved]

NARRATIVE: CASE EVENT DATE: 20240112
